FAERS Safety Report 5530602-0 (Version None)
Quarter: 2007Q4

REPORT INFORMATION
  Report Type: 
  Country: None (occurrence: None)
  Receive Date: 20071130
  Receipt Date: 20071120
  Transmission Date: 20080405
  Serious: Yes (Hospitalization)
  Sender: FDA-Public Use
  Company Number: DE-GENENTECH-251957

PATIENT
  Sex: Female
  Weight: 97 kg

DRUGS (4)
  1. RITUXIMAB [Suspect]
     Indication: NON-HODGKIN'S LYMPHOMA
  2. FLUDARABINE PHOSPHATE [Suspect]
     Indication: NON-HODGKIN'S LYMPHOMA
     Dosage: 40 MG, QD
     Dates: start: 20070612, end: 20070614
  3. CYCLOPHOSPHAMIDE [Suspect]
     Indication: NON-HODGKIN'S LYMPHOMA
     Dosage: 500 MG, QD
     Dates: start: 20070612, end: 20070614
  4. UROMITEXAN [Suspect]
     Indication: NON-HODGKIN'S LYMPHOMA
     Dosage: 40 MG, QD
     Dates: start: 20070612, end: 20070614

REACTIONS (3)
  - INFECTION [None]
  - PULMONARY EMBOLISM [None]
  - RENAL FAILURE ACUTE [None]
